FAERS Safety Report 17425842 (Version 1)
Quarter: 2020Q1

REPORT INFORMATION
  Report Type: Spontaneous
  Country: CA (occurrence: CA)
  Receive Date: 20200218
  Receipt Date: 20200218
  Transmission Date: 20200409
  Serious: Yes (Death, Hospitalization)
  Sender: FDA-Public Use
  Company Number: CA-ROCHE-2550019

PATIENT
  Age: 72 Year
  Sex: Female

DRUGS (13)
  1. HUMIRA [Concomitant]
     Active Substance: ADALIMUMAB
     Route: 058
  2. RANITIDINE. [Concomitant]
     Active Substance: RANITIDINE
     Route: 065
  3. SYNTHROID [Concomitant]
     Active Substance: LEVOTHYROXINE SODIUM
     Route: 065
  4. RITUXAN [Suspect]
     Active Substance: RITUXIMAB
     Route: 042
  5. BENADRYL [Suspect]
     Active Substance: DIPHENHYDRAMINE HYDROCHLORIDE
     Indication: PREMEDICATION
     Route: 048
  6. AMLODIPINE [Concomitant]
     Active Substance: AMLODIPINE BESYLATE
     Route: 065
  7. PREDNISONE. [Concomitant]
     Active Substance: PREDNISONE
     Route: 065
  8. CAFFEINE;CODEINE;PARACETAMOL [Concomitant]
     Active Substance: ACETAMINOPHEN\CAFFEINE\CODEINE
     Indication: PREMEDICATION
     Route: 065
  9. SOLU-MEDROL [Concomitant]
     Active Substance: METHYLPREDNISOLONE SODIUM SUCCINATE
     Indication: PREMEDICATION
     Route: 042
  10. TYLENOL [Concomitant]
     Active Substance: ACETAMINOPHEN
     Indication: PREMEDICATION
     Route: 048
  11. RITUXAN [Suspect]
     Active Substance: RITUXIMAB
     Indication: RHEUMATOID ARTHRITIS
     Route: 042
  12. CANDESARTAN. [Concomitant]
     Active Substance: CANDESARTAN
     Route: 065
  13. TYLENOL ARTHRITIS PAIN [Concomitant]
     Active Substance: ACETAMINOPHEN
     Route: 065

REACTIONS (10)
  - Decreased appetite [Fatal]
  - Plasma cell myeloma [Fatal]
  - Dizziness [Fatal]
  - Asthenia [Fatal]
  - Blood pressure increased [Fatal]
  - Immunodeficiency [Fatal]
  - Limb mass [Fatal]
  - Bacteraemia [Fatal]
  - Diarrhoea [Fatal]
  - Somnolence [Fatal]
